FAERS Safety Report 6520311-3 (Version None)
Quarter: 2009Q4

REPORT INFORMATION
  Report Type: 
  Country: None (occurrence: None)
  Receive Date: 20091229
  Receipt Date: 20091217
  Transmission Date: 20100525
  Serious: Yes (Other)
  Sender: FDA-Public Use
  Company Number: US-BAYER-200943016NA

PATIENT
  Age: 82 Year
  Sex: Female
  Weight: 73 kg

DRUGS (2)
  1. ULTRAVIST 370 [Suspect]
     Indication: ANGIOGRAM
     Dosage: TOTAL DAILY DOSE: 100 ML  UNIT DOSE: 100 ML
     Route: 042
  2. MUCOMYST [Concomitant]
     Indication: PREMEDICATION

REACTIONS (3)
  - DYSPNOEA [None]
  - HYPERHIDROSIS [None]
  - SWELLING [None]
